FAERS Safety Report 10009499 (Version 2)
Quarter: 2014Q1

REPORT INFORMATION
  Report Type: Spontaneous
  Country: US (occurrence: US)
  Receive Date: 20140312
  Receipt Date: 20140312
  Transmission Date: 20141002
  Serious: No
  Sender: FDA-Public Use
  Company Number: US-INCYTE CORPORATION-2012IN001671

PATIENT
  Age: 81 Year
  Sex: Male
  Weight: 73.92 kg

DRUGS (12)
  1. JAKAFI [Suspect]
     Indication: MYELOFIBROSIS
     Dosage: 5 MG, BID
     Route: 048
     Dates: start: 20120809, end: 20120831
  2. JAKAFI [Suspect]
     Indication: PLATELET COUNT INCREASED
     Dosage: 10 MG, BID
     Route: 048
     Dates: start: 20120901
  3. ANAGRELIDE [Concomitant]
     Dosage: 0.5 MG, TID
  4. TERAZOSIN [Concomitant]
     Dosage: 10 MG, QD
  5. AMLODIPINE [Concomitant]
     Dosage: 5 MG, BID
  6. LOVASTATIN [Concomitant]
     Dosage: 40 MG, QD
  7. OMEPRAZOLE [Concomitant]
     Dosage: 20 MG, QD
  8. PREDNISONE [Concomitant]
     Dosage: 10 MG, QD
  9. FUROSEMIDE [Concomitant]
     Dosage: 20 MG, QD
  10. ASPIRIN [Concomitant]
     Dosage: 325 MG, QD
  11. MVI [Concomitant]
     Dosage: UNK, QD
  12. PAIN RELIEF [Concomitant]
     Dosage: PM, QD OTC HS

REACTIONS (1)
  - Epistaxis [Recovered/Resolved]
